FAERS Safety Report 5887684-6 (Version None)
Quarter: 2008Q3

REPORT INFORMATION
  Report Type: 
  Country: None (occurrence: None)
  Receive Date: 20080917
  Receipt Date: 20080917
  Transmission Date: 20090109
  Serious: Yes (Disabling)
  Sender: FDA-Public Use
  Company Number: None

PATIENT
  Age: 41 Year
  Sex: Female
  Weight: 81.6475 kg

DRUGS (1)
  1. TOPAMAX [Suspect]
     Indication: HEADACHE
     Dosage: 25 MG QD 047
     Route: 048

REACTIONS (4)
  - BLINDNESS [None]
  - EYE PAIN [None]
  - HEADACHE [None]
  - VISUAL IMPAIRMENT [None]
